FAERS Safety Report 7250355-8 (Version None)
Quarter: 2011Q1

REPORT INFORMATION
  Report Type: 
  Country: None (occurrence: None)
  Receive Date: 20110121
  Receipt Date: 20110121
  Transmission Date: 20110831
  Serious: No
  Sender: FDA-Public Use
  Company Number: None

PATIENT
  Age: 65 Year
  Sex: Male
  Weight: 90.7194 kg

DRUGS (1)
  1. CRESTOR [Suspect]
     Indication: BLOOD TRIGLYCERIDES INCREASED
     Dosage: 1 Q.D.
     Dates: start: 20101101, end: 20110120

REACTIONS (4)
  - CONSTIPATION [None]
  - FLANK PAIN [None]
  - BACK PAIN [None]
  - ABDOMINAL PAIN UPPER [None]
